FAERS Safety Report 4539386-6 (Version None)
Quarter: 2004Q4

REPORT INFORMATION
  Report Type: 
  Country: None (occurrence: None)
  Receive Date: 20041222
  Receipt Date: 20041209
  Transmission Date: 20050328
  Serious: Yes (Hospitalization)
  Sender: FDA-Public Use
  Company Number: 2004AP04749

PATIENT
  Age: 74 Year
  Sex: Male

DRUGS (17)
  1. IRESSA [Suspect]
     Indication: BRONCHIOLOALVEOLAR CARCINOMA
     Dosage: 250 MG DAILY PO
     Route: 048
     Dates: start: 20040604, end: 20040607
  2. IRESSA [Suspect]
     Indication: BRONCHIOLOALVEOLAR CARCINOMA
     Dosage: 250 MG DAILY PO
     Route: 048
     Dates: start: 20040629, end: 20040714
  3. PARAPLATIN [Concomitant]
  4. TAXOL [Concomitant]
  5. GOSHAJINKIGAN [Concomitant]
  6. TORSEMIDE [Concomitant]
  7. MAXIPIME [Concomitant]
  8. MUCODYNE [Concomitant]
  9. HOKUNALIN [Concomitant]
  10. NAIXAN [Concomitant]
  11. MARZULENE [Concomitant]
  12. CIPROXAN [Concomitant]
  13. PREDONINE [Concomitant]
  14. ALTAT [Concomitant]
  15. PAZUCROSS [Concomitant]
  16. CRAVIT [Concomitant]
  17. NO MATCH [Concomitant]

REACTIONS (5)
  - BLOOD LACTATE DEHYDROGENASE INCREASED [None]
  - HOT FLUSH [None]
  - INTERSTITIAL LUNG DISEASE [None]
  - PYOTHORAX [None]
  - RASH [None]
